FAERS Safety Report 8481514-4 (Version None)
Quarter: 2012Q3

REPORT INFORMATION
  Report Type: 
  Country: None (occurrence: None)
  Receive Date: 20120702
  Receipt Date: 20120620
  Transmission Date: 20120928
  Serious: Yes (Other)
  Sender: FDA-Public Use
  Company Number: JP-VERTEX PHARMACEUTICALS INC.-AE-2012-005674

PATIENT
  Age: 68 Year
  Sex: Female

DRUGS (11)
  1. RIBAVIRIN [Concomitant]
     Route: 048
     Dates: start: 20120416
  2. RIBAVIRIN [Concomitant]
     Indication: HEPATITIS C
     Route: 048
     Dates: start: 20120227, end: 20120311
  3. PEGINTEREFERON ALFA-2B [Concomitant]
     Indication: HEPATITIS C
     Route: 058
     Dates: start: 20120227
  4. PEGINTEREFERON ALFA-2B [Concomitant]
     Route: 058
  5. ALLOPURINOL [Concomitant]
     Indication: HYPERURICAEMIA
     Route: 048
     Dates: start: 20120302, end: 20120422
  6. TELAVIC (TELAPREVIR) [Suspect]
     Route: 048
     Dates: start: 20120302, end: 20120408
  7. SELBEX [Concomitant]
     Indication: PROPHYLAXIS
     Route: 048
     Dates: start: 20120227
  8. TELAVIC (TELAPREVIR) [Suspect]
     Indication: HEPATITIS C
     Route: 048
     Dates: start: 20120227, end: 20120301
  9. RIBAVIRIN [Concomitant]
     Route: 048
     Dates: start: 20120312
  10. LOXONIN [Concomitant]
     Indication: PROPHYLAXIS
     Route: 048
     Dates: start: 20120227
  11. OMEPRAZOLE [Concomitant]
     Indication: NAUSEA
     Route: 048
     Dates: start: 20120229

REACTIONS (7)
  - RENAL DISORDER [None]
  - BLOOD CREATININE INCREASED [None]
  - TOXIC SKIN ERUPTION [None]
  - HYPERURICAEMIA [None]
  - PLATELET COUNT DECREASED [None]
  - ANAEMIA [None]
  - WHITE BLOOD CELL COUNT DECREASED [None]
